FAERS Safety Report 19020482 (Version 3)
Quarter: 2021Q2

REPORT INFORMATION
  Report Type: Spontaneous
  Country: RO (occurrence: RO)
  Receive Date: 20210317
  Receipt Date: 20210408
  Transmission Date: 20210717
  Serious: Yes (Life-Threatening, Hospitalization, Other)
  Sender: FDA-Public Use
  Company Number: NVSC2021RO061818

PATIENT
  Age: 46 Year
  Sex: Male

DRUGS (16)
  1. MYCOPHENOLIC ACID. [Suspect]
     Active Substance: MYCOPHENOLIC ACID
     Indication: RENAL TRANSPLANT
     Dosage: 720 MG, Q12H
     Route: 065
     Dates: start: 201709, end: 20200405
  2. LOPINAVIR/RITONAVIR [Interacting]
     Active Substance: LOPINAVIR\RITONAVIR
     Indication: COVID-19 PNEUMONIA
     Dosage: 1 DF, Q12H
     Route: 065
     Dates: start: 20200502
  3. TACROLIMUS. [Interacting]
     Active Substance: TACROLIMUS
     Dosage: 1.5 MG, QD (EXTENDED?RELEASE TACROLIMUS)
     Route: 048
     Dates: start: 20200410, end: 20200412
  4. ENOXAPARIN [Concomitant]
     Active Substance: ENOXAPARIN
     Indication: PROPHYLAXIS
     Dosage: 8000 UI, QD
     Route: 065
  5. AZITHROMYCIN ANHYDROUS. [Concomitant]
     Active Substance: AZITHROMYCIN ANHYDROUS
     Indication: ANTIBIOTIC PROPHYLAXIS
     Dosage: 500 MG, QD
     Route: 065
  6. TACROLIMUS. [Interacting]
     Active Substance: TACROLIMUS
     Indication: RENAL TRANSPLANT
     Dosage: 2.5 MG, QD (EXTENDED?RELEASE TACROLIMUS)
     Route: 048
     Dates: start: 201709, end: 20200407
  7. TACROLIMUS. [Interacting]
     Active Substance: TACROLIMUS
     Dosage: 1.5 MG, QD (EXTENDED?RELEASE TACROLIMUS)
     Route: 048
     Dates: start: 20200426, end: 20200428
  8. MYCOPHENOLIC ACID. [Suspect]
     Active Substance: MYCOPHENOLIC ACID
     Indication: IMMUNOSUPPRESSANT DRUG THERAPY
     Dosage: 1080 MG, QD
     Route: 065
     Dates: start: 20200405, end: 20200407
  9. BASILIXIMAB [Suspect]
     Active Substance: BASILIXIMAB
     Indication: RENAL TRANSPLANT
     Dosage: UNK
     Route: 065
     Dates: start: 201709, end: 201709
  10. TACROLIMUS. [Interacting]
     Active Substance: TACROLIMUS
     Indication: IMMUNOSUPPRESSANT DRUG THERAPY
     Dosage: 2 MG, QD (EXTENDED?RELEASE TACROLIMUS)
     Route: 048
     Dates: start: 20200407, end: 20200410
  11. PREDNISONE. [Suspect]
     Active Substance: PREDNISONE
     Indication: RENAL TRANSPLANT
     Dosage: 5 MG, QD
     Route: 065
     Dates: start: 201709, end: 202004
  12. BASILIXIMAB [Suspect]
     Active Substance: BASILIXIMAB
     Indication: IMMUNOSUPPRESSANT DRUG THERAPY
  13. TACROLIMUS. [Interacting]
     Active Substance: TACROLIMUS
     Dosage: 2.5 MG, QD (EXTENDED?RELEASE TACROLIMUS)
     Route: 048
     Dates: start: 20200428, end: 20200428
  14. PREDNISONE. [Suspect]
     Active Substance: PREDNISONE
     Indication: IMMUNOSUPPRESSANT DRUG THERAPY
  15. MYCOPHENOLIC ACID. [Suspect]
     Active Substance: MYCOPHENOLIC ACID
     Dosage: 720 MG, QD
     Route: 065
     Dates: start: 20200407, end: 20200410
  16. AMOXICILLIN+CLAVULANIC ACID [Concomitant]
     Active Substance: AMOXICILLIN\CLAVULANIC ACID
     Indication: PRODUCT USED FOR UNKNOWN INDICATION
     Dosage: 1 DF, BID
     Route: 065

REACTIONS (11)
  - Acute kidney injury [Recovered/Resolved]
  - Drug interaction [Unknown]
  - Nephropathy [Recovered/Resolved]
  - Dehydration [Recovered/Resolved]
  - Nephropathy toxic [Recovered/Resolved]
  - Pneumonia bacterial [Recovered/Resolved]
  - Renal tubular dysfunction [Recovered/Resolved]
  - Thrombocytopenia [Recovered/Resolved]
  - COVID-19 pneumonia [Recovered/Resolved]
  - Hypercoagulation [Recovered/Resolved]
  - Overdose [Unknown]

NARRATIVE: CASE EVENT DATE: 202005
